FAERS Safety Report 7415451-0 (Version None)
Quarter: 2011Q2

REPORT INFORMATION
  Report Type: 
  Country: None (occurrence: None)
  Receive Date: 20110414
  Receipt Date: 20110405
  Transmission Date: 20111010
  Serious: Yes (Hospitalization, Disabling)
  Sender: FDA-Public Use
  Company Number: BR-ASTRAZENECA-2011SE19340

PATIENT
  Age: 62 Year
  Sex: Female
  Weight: 67 kg

DRUGS (5)
  1. SYMBICORT [Suspect]
     Indication: CHRONIC OBSTRUCTIVE PULMONARY DISEASE
     Dosage: 320/9 MCG TID
     Route: 055
     Dates: start: 20090101
  2. ATACAND COMB [Suspect]
     Indication: HYPERTENSION
     Dosage: 16/5 MG ONCE DAILY
     Route: 048
     Dates: start: 20110301, end: 20110301
  3. SPLENDIL [Suspect]
     Indication: HYPERTENSION
     Route: 048
     Dates: start: 19950101, end: 20060101
  4. SPLENDIL [Suspect]
     Route: 048
     Dates: start: 20060101, end: 20110301
  5. SPIRIVA [Concomitant]
     Indication: CHRONIC OBSTRUCTIVE PULMONARY DISEASE
     Dosage: DAILY
     Route: 055
     Dates: start: 20090101

REACTIONS (6)
  - DRUG PRESCRIBING ERROR [None]
  - INTRACRANIAL ANEURYSM [None]
  - CHRONIC OBSTRUCTIVE PULMONARY DISEASE [None]
  - AORTIC ANEURYSM [None]
  - BLOOD PRESSURE INADEQUATELY CONTROLLED [None]
  - PNEUMONIA [None]
